FAERS Safety Report 23068128 (Version 1)
Quarter: 2023Q4

REPORT INFORMATION
  Report Type: Spontaneous
  Country: LT (occurrence: LT)
  Receive Date: 20231016
  Receipt Date: 20231016
  Transmission Date: 20240109
  Serious: Yes (Hospitalization, Other)
  Sender: FDA-Public Use
  Company Number: None

PATIENT
  Age: 65 Year
  Sex: Male

DRUGS (5)
  1. CARBOPLATIN [Suspect]
     Active Substance: CARBOPLATIN
     Indication: Lung adenocarcinoma stage IV
     Dosage: UNK, 6 ADMINISTRATIONS WITH PEMBROLIZUMAB AND PEMETREXED, START 24-JUN-2021
     Route: 065
     Dates: start: 20210624, end: 20211112
  2. PEMETREXED [Suspect]
     Active Substance: PEMETREXED
     Indication: Lung adenocarcinoma stage IV
     Dosage: UNK, 3 ADMINISTRATIONS WITH PEMBROLIZUMAB, START 02-DEC-2021
     Route: 065
     Dates: start: 20211202, end: 20220215
  3. PEMETREXED [Suspect]
     Active Substance: PEMETREXED
     Dosage: UNK, 6 ADMINISTRATIONS WITH PEMBROLIZUMAB AND CARBOPLATIN, START 24-JUN-2021
     Route: 065
     Dates: start: 20210624, end: 20211112
  4. PEMBROLIZUMAB [Suspect]
     Active Substance: PEMBROLIZUMAB
     Indication: Lung adenocarcinoma stage IV
     Dosage: UNK, 3 ADMINISTRATIONS WITH PEMETREXED, START 02-DEC-2021
     Route: 065
     Dates: start: 20211202, end: 20220215
  5. PEMBROLIZUMAB [Suspect]
     Active Substance: PEMBROLIZUMAB
     Dosage: UNK, 6 ADMINISTRATIONS WITH PEMETREXED AND CARBOPLATIN, START 24-JUN-2021
     Route: 065
     Dates: start: 20210624, end: 20211112

REACTIONS (3)
  - Pneumonia [Unknown]
  - Malignant neoplasm progression [Unknown]
  - Product prescribing issue [Unknown]

NARRATIVE: CASE EVENT DATE: 20210101
